FAERS Safety Report 6780319-X (Version None)
Quarter: 2010Q2

REPORT INFORMATION
  Report Type: 
  Country: None (occurrence: None)
  Receive Date: 20100618
  Receipt Date: 20100610
  Transmission Date: 20101027
  Serious: Yes (Other)
  Sender: FDA-Public Use
  Company Number: GB-AMGEN-QUU418124

PATIENT
  Age: 43 Year
  Sex: Female
  Weight: 68.7 kg

DRUGS (5)
  1. ENBREL [Suspect]
     Indication: DRUG USE FOR UNKNOWN INDICATION
     Dosage: UNKNOWN
  2. CANDESARTAN [Concomitant]
     Dosage: UNKNOWN
  3. LEVOTHYROXINE SODIUM [Concomitant]
     Dosage: UNKNOWN
  4. ACYCLOVIR [Concomitant]
     Dosage: UNKNOWN
     Route: 048
     Dates: start: 20100301
  5. UNSPECIFIED HORMONE REPLACEMENT THERAPY AGENT [Concomitant]
     Route: 048

REACTIONS (3)
  - JAW DISORDER [None]
  - LYMPHOMA [None]
  - NECK MASS [None]
